FAERS Safety Report 23528208 (Version 2)
Quarter: 2024Q1

REPORT INFORMATION
  Report Type: Report from Study
  Country: GB (occurrence: JM)
  Receive Date: 20240215
  Receipt Date: 20240223
  Transmission Date: 20240409
  Serious: Yes (Hospitalization, Other)
  Sender: FDA-Public Use
  Company Number: GB-BRISTOL-MYERS SQUIBB COMPANY-2024-024777

PATIENT
  Age: 50 Year
  Sex: Male

DRUGS (1)
  1. LUSPATERCEPT [Suspect]
     Active Substance: LUSPATERCEPT
     Indication: Thalassaemia
     Dosage: DOSE: UNAVAILABLE; FREQ : UNAVAILABLE

REACTIONS (2)
  - Road traffic accident [Recovering/Resolving]
  - Internal haemorrhage [Recovering/Resolving]
